FAERS Safety Report 24822382 (Version 1)
Quarter: 2025Q1

REPORT INFORMATION
  Report Type: Spontaneous
  Country: US (occurrence: US)
  Receive Date: 20250108
  Receipt Date: 20250108
  Transmission Date: 20250409
  Serious: No
  Sender: ALEXION PHARMACEUTICALS
  Company Number: US-AstraZeneca-CH-00780195A

PATIENT
  Age: 71 Year
  Weight: 61.234 kg

DRUGS (12)
  1. FASENRA [Suspect]
     Active Substance: BENRALIZUMAB
     Indication: Asthma
  2. FASENRA [Suspect]
     Active Substance: BENRALIZUMAB
     Route: 058
  3. FASENRA [Suspect]
     Active Substance: BENRALIZUMAB
  4. FASENRA [Suspect]
     Active Substance: BENRALIZUMAB
     Route: 058
  5. ANAPROX [Concomitant]
     Active Substance: NAPROXEN SODIUM
     Route: 065
  6. ANAPROX [Concomitant]
     Active Substance: NAPROXEN SODIUM
     Route: 065
  7. AZELASTINE [Concomitant]
     Active Substance: AZELASTINE
     Route: 065
  8. AZELASTINE [Concomitant]
     Active Substance: AZELASTINE
     Route: 065
  9. LEVALBUTEROL [Concomitant]
     Active Substance: LEVALBUTEROL
     Route: 065
  10. LEVALBUTEROL [Concomitant]
     Active Substance: LEVALBUTEROL
     Route: 065
  11. SYMBICORT [Concomitant]
     Active Substance: BUDESONIDE\FORMOTEROL FUMARATE DIHYDRATE
  12. ALBUTEROL [Concomitant]
     Active Substance: ALBUTEROL

REACTIONS (5)
  - Myalgia [Not Recovered/Not Resolved]
  - Cough [Recovering/Resolving]
  - Eye inflammation [Not Recovered/Not Resolved]
  - Rhinorrhoea [Recovering/Resolving]
  - Gait disturbance [Not Recovered/Not Resolved]
